FAERS Safety Report 9228114 (Version 1)
Quarter: 2013Q2

REPORT INFORMATION
  Report Type: Spontaneous
  Country: US (occurrence: US)
  Receive Date: 20130412
  Receipt Date: 20130412
  Transmission Date: 20140414
  Serious: Yes (Other)
  Sender: FDA-Public Use
  Company Number: US-TARO-2013P1004395

PATIENT
  Age: 2 Year
  Sex: Female
  Weight: 11.34 kg

DRUGS (2)
  1. CETIRIZINE HCL ORAL SOLUTION 1MG/ML (SUGAR FREE BUBBLE GUM) [Suspect]
     Route: 048
     Dates: start: 2012, end: 201302
  2. CETIRIZINE HCL ORAL SOLUTION 1MG/ML (SUGAR FREE BUBBLE GUM) [Suspect]
     Route: 048
     Dates: start: 2012, end: 201302

REACTIONS (6)
  - Infection [Recovering/Resolving]
  - Diarrhoea [Recovering/Resolving]
  - Weight decreased [Recovering/Resolving]
  - White blood cell count increased [Unknown]
  - Product contamination [Unknown]
  - Product contamination microbial [None]
